FAERS Safety Report 15941343 (Version 2)
Quarter: 2019Q1

REPORT INFORMATION
  Report Type: Spontaneous
  Country: US (occurrence: US)
  Receive Date: 20190208
  Receipt Date: 20190222
  Transmission Date: 20190417
  Serious: No
  Sender: FDA-Public Use
  Company Number: US-ASCEND THERAPEUTICS-2062447

PATIENT
  Sex: Female

DRUGS (1)
  1. ESTROGEL [Suspect]
     Active Substance: ESTRADIOL

REACTIONS (4)
  - Rash [None]
  - Hyperaesthesia [Unknown]
  - Dry skin [Unknown]
  - Dermatitis allergic [Unknown]
